FAERS Safety Report 10161372 (Version 3)
Quarter: 2014Q3

REPORT INFORMATION
  Report Type: Spontaneous
  Country: US (occurrence: US)
  Receive Date: 20140509
  Receipt Date: 20140807
  Transmission Date: 20150326
  Serious: Yes (Other)
  Sender: FDA-Public Use
  Company Number: 2014SP002434

PATIENT
  Age: 52 Year
  Sex: Female
  Weight: 70 kg

DRUGS (6)
  1. CARBAMAZEPINE. [Concomitant]
     Active Substance: CARBAMAZEPINE
     Route: 048
  2. FLUOXETINE [Concomitant]
     Active Substance: FLUOXETINE\FLUOXETINE HYDROCHLORIDE
     Route: 048
  3. LATUDA [Suspect]
     Active Substance: LURASIDONE HYDROCHLORIDE
     Indication: DEPRESSION
     Route: 048
  4. ZONISAMIDE. [Concomitant]
     Active Substance: ZONISAMIDE
     Route: 048
  5. PRIMIDONE. [Concomitant]
     Active Substance: PRIMIDONE
     Route: 048
  6. LATUDA [Suspect]
     Active Substance: LURASIDONE HYDROCHLORIDE
     Indication: DEPRESSION
     Route: 048

REACTIONS (10)
  - Vomiting [Not Recovered/Not Resolved]
  - Convulsion [Unknown]
  - Fall [Recovered/Resolved]
  - Ammonia increased [Unknown]
  - Suicide attempt [Recovered/Resolved]
  - Vagal nerve stimulator implantation [Recovered/Resolved]
  - Blood cholesterol increased [Unknown]
  - Depression suicidal [Unknown]
  - Epileptic aura [Unknown]
  - Laceration [Unknown]

NARRATIVE: CASE EVENT DATE: 20140401
